FAERS Safety Report 24741064 (Version 2)
Quarter: 2024Q4

REPORT INFORMATION
  Report Type: Report from Study
  Country: US (occurrence: US)
  Receive Date: 20241217
  Receipt Date: 20241230
  Transmission Date: 20250114
  Serious: Yes (Death, Hospitalization)
  Sender: ROCHE
  Company Number: US-ROCHE-10000159180

PATIENT
  Age: 62 Year
  Sex: Male
  Weight: 97.52 kg

DRUGS (7)
  1. OCREVUS [Suspect]
     Active Substance: OCRELIZUMAB
     Indication: Primary progressive multiple sclerosis
     Dosage: MORE DOSAGE INFORMATION IS 300 MG SINGLE-USE VIAL
     Route: 065
     Dates: end: 20210708
  2. OCREVUS [Suspect]
     Active Substance: OCRELIZUMAB
     Dosage: MORE DOSAGE INFORMATION IS 300 MG SINGLE-USE VIAL
     Route: 065
     Dates: start: 2021, end: 202402
  3. BACLOFEN [Concomitant]
     Active Substance: BACLOFEN
  4. BIOTIN [Concomitant]
     Active Substance: BIOTIN
  5. AVONEX [Concomitant]
     Active Substance: INTERFERON BETA-1A
  6. REBIF [Concomitant]
     Active Substance: INTERFERON BETA-1A
  7. TYSABRI [Concomitant]
     Active Substance: NATALIZUMAB

REACTIONS (4)
  - Infection [Recovering/Resolving]
  - Mass [Recovering/Resolving]
  - Pallor [Unknown]
  - Death [Fatal]

NARRATIVE: CASE EVENT DATE: 20240701
